FAERS Safety Report 19677059 (Version 1)
Quarter: 2021Q3

REPORT INFORMATION
  Report Type: Spontaneous
  Country: US (occurrence: US)
  Receive Date: 20210809
  Receipt Date: 20210809
  Transmission Date: 20211014
  Serious: Yes (Other)
  Sender: FDA-Public Use
  Company Number: NVSC2021US177616

PATIENT
  Age: 32 Year
  Sex: Male

DRUGS (1)
  1. COSENTYX [Suspect]
     Active Substance: SECUKINUMAB
     Indication: PSORIASIS
     Dosage: 300 MG QW (0,1,2,3,4)
     Route: 065
     Dates: start: 20210715

REACTIONS (3)
  - Eye swelling [Unknown]
  - Ophthalmic herpes zoster [Unknown]
  - Eye infection [Unknown]
